FAERS Safety Report 5179417-6 (Version None)
Quarter: 2006Q4

REPORT INFORMATION
  Report Type: 
  Country: None (occurrence: None)
  Receive Date: 20061219
  Receipt Date: 20061211
  Transmission Date: 20070319
  Serious: Yes (Other)
  Sender: FDA-Public Use
  Company Number: FR-ROCHE-474911

PATIENT
  Sex: Female

DRUGS (2)
  1. ROACCUTANE [Suspect]
     Indication: DRUG USE FOR UNKNOWN INDICATION
     Route: 065
  2. MELIANE [Concomitant]
     Indication: CONTRACEPTION

REACTIONS (3)
  - NAUSEA [None]
  - TRANSAMINASES INCREASED [None]
  - VOMITING [None]
